FAERS Safety Report 6994183-7 (Version None)
Quarter: 2010Q3

REPORT INFORMATION
  Report Type: 
  Country: None (occurrence: None)
  Receive Date: 20100917
  Receipt Date: 20090928
  Transmission Date: 20110219
  Serious: No
  Sender: FDA-Public Use
  Company Number: US-ASTRAZENECA-2009SE16265

PATIENT
  Age: 50 Year
  Sex: Male

DRUGS (6)
  1. SEROQUEL [Suspect]
     Indication: BIPOLAR DISORDER
     Route: 048
     Dates: start: 20020101
  2. SEROQUEL [Suspect]
     Route: 048
     Dates: start: 20090921
  3. COUMADIN [Concomitant]
  4. TAMAZAPAM [Concomitant]
  5. TRAMADOL [Concomitant]
  6. TRAZODONE HCL [Concomitant]

REACTIONS (1)
  - FALL [None]
